FAERS Safety Report 22280149 (Version 1)
Quarter: 2023Q2

REPORT INFORMATION
  Report Type: Spontaneous
  Country: GB (occurrence: None)
  Receive Date: 20230503
  Receipt Date: 20230503
  Transmission Date: 20230722
  Serious: Yes (Other)
  Sender: FDA-Public Use
  Company Number: 2023A096370

PATIENT
  Age: 72 Year
  Sex: Female

DRUGS (6)
  1. BENRALIZUMAB [Suspect]
     Active Substance: BENRALIZUMAB
     Indication: Asthma
     Dosage: 30 MG ONCE A MONTH FOR FIRST 3 DOSE; ;
     Route: 058
     Dates: start: 20230407, end: 20230424
  2. FLUTICASONE FUROATE [Concomitant]
     Active Substance: FLUTICASONE FUROATE
     Indication: Rhinitis
  3. IMMUNOGLOBULIN NORMAL [Concomitant]
  4. OMEPRAZOLE [Concomitant]
     Active Substance: OMEPRAZOLE
     Indication: Gastrooesophageal reflux disease
  5. SYMBICORT [Concomitant]
     Active Substance: BUDESONIDE\FORMOTEROL FUMARATE DIHYDRATE
     Indication: Asthma
  6. TIOTROPIUM BROMIDE [Concomitant]
     Active Substance: TIOTROPIUM BROMIDE
     Indication: Asthma

REACTIONS (1)
  - Back pain [Recovering/Resolving]

NARRATIVE: CASE EVENT DATE: 20230408
